FAERS Safety Report 7479828-X (Version None)
Quarter: 2011Q2

REPORT INFORMATION
  Report Type: 
  Country: None (occurrence: None)
  Receive Date: 20110513
  Receipt Date: 20110502
  Transmission Date: 20111010
  Serious: Yes (Other)
  Sender: FDA-Public Use
  Company Number: US-CELGENEUS-163-21880-11011779

PATIENT
  Sex: Female

DRUGS (5)
  1. REVLIMID [Suspect]
     Indication: MULTIPLE MYELOMA
     Route: 048
     Dates: start: 20080520, end: 20091020
  2. DEXAMETHASONE [Suspect]
     Indication: MULTIPLE MYELOMA
     Route: 065
  3. FLUOROURACIL [Suspect]
     Indication: MULTIPLE MYELOMA
     Route: 065
  4. THALOMID [Suspect]
     Indication: MULTIPLE MYELOMA
     Route: 048
  5. MELPHALAN HYDROCHLORIDE [Suspect]
     Indication: MULTIPLE MYELOMA
     Route: 065

REACTIONS (2)
  - MULTIPLE MYELOMA [None]
  - SQUAMOUS CELL CARCINOMA [None]
